FAERS Safety Report 12745687 (Version 1)
Quarter: 2016Q3

REPORT INFORMATION
  Report Type: Spontaneous
  Country: JP (occurrence: JP)
  Receive Date: 20160915
  Receipt Date: 20160915
  Transmission Date: 20161109
  Serious: Yes (Hospitalization, Other)
  Sender: FDA-Public Use
  Company Number: JP-APOPHARMA USA, INC.-2016AP011796

PATIENT
  Age: 71 Year
  Sex: Female

DRUGS (5)
  1. DEXAMETHASONE. [Concomitant]
     Active Substance: DEXAMETHASONE
     Dosage: 12 MG, QD
     Route: 065
     Dates: start: 2009, end: 2009
  2. IMMUNOGLOBULIN                     /00025201/ [Concomitant]
     Active Substance: HUMAN IMMUNOGLOBULIN G
     Indication: CHRONIC INFLAMMATORY DEMYELINATING POLYRADICULONEUROPATHY
     Dosage: UNK UNK, UNKNOWN
     Route: 042
     Dates: start: 2009, end: 2010
  3. METHOTREXATE. [Concomitant]
     Active Substance: METHOTREXATE
     Indication: CHRONIC INFLAMMATORY DEMYELINATING POLYRADICULONEUROPATHY
     Dosage: 15 MG, Q.WK.
     Route: 065
     Dates: start: 2009, end: 2009
  4. ALKERAN [Suspect]
     Active Substance: MELPHALAN
     Indication: CHRONIC INFLAMMATORY DEMYELINATING POLYRADICULONEUROPATHY
     Dosage: 5 MG, UNKNOWN
     Route: 065
     Dates: start: 2009, end: 2009
  5. PREDNISOLONE. [Concomitant]
     Active Substance: PREDNISOLONE
     Indication: CHRONIC INFLAMMATORY DEMYELINATING POLYRADICULONEUROPATHY
     Dosage: 32 MG, UNKNOWN
     Route: 065
     Dates: start: 2009, end: 2009

REACTIONS (1)
  - Sepsis [Unknown]
